FAERS Safety Report 20177789 (Version 1)
Quarter: 2021Q4

REPORT INFORMATION
  Report Type: Spontaneous
  Country: US (occurrence: US)
  Receive Date: 20211213
  Receipt Date: 20211213
  Transmission Date: 20220303
  Serious: Yes (Hospitalization, Other)
  Sender: FDA-Public Use
  Company Number: US-SA-SAC20211207001074

PATIENT
  Age: 59 Year
  Sex: Female
  Weight: 144.04 kg

DRUGS (15)
  1. AUBAGIO [Suspect]
     Active Substance: TERIFLUNOMIDE
     Indication: Multiple sclerosis
     Dosage: 14 MG, QD
     Route: 048
  2. ACETAMINOPHEN\HYDROCODONE [Concomitant]
     Active Substance: ACETAMINOPHEN\HYDROCODONE
  3. MYRBETRIQ [Concomitant]
     Active Substance: MIRABEGRON
  4. ATORVASTATIN CALCIUM [Concomitant]
     Active Substance: ATORVASTATIN CALCIUM
  5. DILTIAZEM [Concomitant]
     Active Substance: DILTIAZEM
  6. FUROSEMIDE [Concomitant]
     Active Substance: FUROSEMIDE
  7. POTASSIUM CHLORIDE [Concomitant]
     Active Substance: POTASSIUM CHLORIDE
  8. METOPROLOL SUCCINATE [Concomitant]
     Active Substance: METOPROLOL SUCCINATE
  9. XARELTO [Concomitant]
     Active Substance: RIVAROXABAN
  10. LISINOPRIL [Concomitant]
     Active Substance: LISINOPRIL
  11. CYMBALTA [Concomitant]
     Active Substance: DULOXETINE HYDROCHLORIDE
  12. TRELEGY ELLIPTA [Concomitant]
     Active Substance: FLUTICASONE FUROATE\UMECLIDINIUM BROMIDE\VILANTEROL TRIFENATATE
  13. VITAMIN D3 [Concomitant]
     Active Substance: CHOLECALCIFEROL
  14. NUVIGIL [Concomitant]
     Active Substance: ARMODAFINIL
  15. GABAPENTIN [Concomitant]
     Active Substance: GABAPENTIN

REACTIONS (10)
  - Cerebrovascular accident [Unknown]
  - Pulmonary fibrosis [Unknown]
  - Cardiac failure [Unknown]
  - Stress cardiomyopathy [Unknown]
  - Abdominal pain upper [Unknown]
  - Dyspnoea [Unknown]
  - Weight decreased [Unknown]
  - Intellectual disability [Unknown]
  - Depressed mood [Unknown]
  - COVID-19 [Unknown]

NARRATIVE: CASE EVENT DATE: 20200301
